FAERS Safety Report 7441749-6 (Version None)
Quarter: 2011Q2

REPORT INFORMATION
  Report Type: 
  Country: None (occurrence: None)
  Receive Date: 20110419
  Receipt Date: 20110404
  Transmission Date: 20111010
  Serious: Yes (Hospitalization, Other)
  Sender: FDA-Public Use
  Company Number: DSA_44952_2011

PATIENT
  Sex: Female

DRUGS (7)
  1. CORAL CALCIUM [Concomitant]
  2. TOPROL-XL [Concomitant]
  3. TRIAMTERENE AND HYDROCHLOROTHIAZIDE [Concomitant]
  4. ALTACE [Concomitant]
  5. NIFEDIPINE [Suspect]
     Indication: HYPERTENSION
     Dosage: (30 MG QD ORAL)
     Route: 048
     Dates: start: 19991214, end: 20040521
  6. HEMOCYTE [Concomitant]
  7. ONE SOURCE MULTIVITAMIN [Concomitant]

REACTIONS (9)
  - SENSITIVITY OF TEETH [None]
  - TOOTH LOSS [None]
  - MUSCLE SPASMS [None]
  - BURNING SENSATION [None]
  - GINGIVAL BLEEDING [None]
  - ARTHRALGIA [None]
  - BRUXISM [None]
  - TOOTH DISORDER [None]
  - ARTERIAL STENOSIS [None]
